FAERS Safety Report 22057752 (Version 1)
Quarter: 2023Q1

REPORT INFORMATION
  Report Type: Spontaneous
  Country: US (occurrence: US)
  Receive Date: 20230303
  Receipt Date: 20230303
  Transmission Date: 20230418
  Serious: Yes (Other)
  Sender: FDA-Public Use
  Company Number: US-ORG100016242-2023000034

PATIENT

DRUGS (3)
  1. EXPAREL [Suspect]
     Active Substance: BUPIVACAINE
     Indication: Transversus abdominis plane block
     Dosage: NOT PROVIDED
  2. BUPIVACAINE [Suspect]
     Active Substance: BUPIVACAINE
     Indication: Transversus abdominis plane block
     Dosage: NOT PROVIDED
  3. KETAMINE [Suspect]
     Active Substance: KETAMINE
     Indication: Analgesic therapy
     Route: 042

REACTIONS (2)
  - Hallucination [Recovered/Resolved]
  - Dissociative disorder [Recovered/Resolved]
